FAERS Safety Report 4645529-6 (Version None)
Quarter: 2005Q2

REPORT INFORMATION
  Report Type: 
  Country: None (occurrence: None)
  Receive Date: 20050425
  Receipt Date: 20050415
  Transmission Date: 20051028
  Serious: Yes (Hospitalization)
  Sender: FDA-Public Use
  Company Number: 2005051632

PATIENT
  Age: 48 Year
  Sex: Male

DRUGS (5)
  1. EPIRUBICIN HCL [Suspect]
     Indication: SMALL CELL LUNG CANCER STAGE UNSPECIFIED
     Dosage: 60 MG (2 CYCLE INTERVAL: DAILY), INTRAVENOUS
     Route: 042
     Dates: start: 20050105, end: 20050207
  2. ETOPOSIDE [Suspect]
     Indication: SMALL CELL LUNG CANCER STAGE UNSPECIFIED
     Dosage: 150 MG (2 CYCLE), INTRAVENOUS
     Route: 042
     Dates: start: 20050105, end: 20050207
  3. CISPLATIN [Suspect]
     Indication: SMALL CELL LUNG CANCER STAGE UNSPECIFIED
     Dosage: 155 MG (2 CYCLE INTERVAL: DAILY), INTRAVENOUS
     Route: 042
     Dates: start: 20050105, end: 20050207
  4. CYCLOPHOSPHAMIDE [Suspect]
     Indication: SMALL CELL LUNG CANCER STAGE UNSPECIFIED
     Dosage: 620 MG (2 CYCLE INTERVAL: DAILY), INTRAVENOUS
     Route: 042
     Dates: start: 20050105, end: 20050207
  5. PREDNISOLONE SODIUM PHOSPHATE [Concomitant]

REACTIONS (8)
  - ASTHENIA [None]
  - CONDITION AGGRAVATED [None]
  - COUGH [None]
  - CRYPTOGENIC ORGANIZING PNEUMONIA [None]
  - MYALGIA [None]
  - PULMONARY HYPERTENSION [None]
  - PULMONARY VENO-OCCLUSIVE DISEASE [None]
  - VIRAL INFECTION [None]
